FAERS Safety Report 14921398 (Version 1)
Quarter: 2018Q2

REPORT INFORMATION
  Report Type: Spontaneous
  Country: FR (occurrence: FR)
  Receive Date: 20180522
  Receipt Date: 20180522
  Transmission Date: 20180711
  Serious: Yes (Life-Threatening)
  Sender: FDA-Public Use
  Company Number: FR-TEVA-2018-FR-895493

PATIENT
  Age: 26 Year
  Sex: Male

DRUGS (3)
  1. AMOXICILLIN. [Suspect]
     Active Substance: AMOXICILLIN
     Dosage: UNKNOWN
     Route: 065
     Dates: start: 201802, end: 201802
  2. PHENACETINE [Suspect]
     Active Substance: PHENACETIN
     Dosage: INCONNUE
     Route: 065
     Dates: start: 201802, end: 201802
  3. METHADONE [Suspect]
     Active Substance: METHADONE HYDROCHLORIDE
     Dosage: INCONNUE
     Route: 065
     Dates: start: 201802, end: 201802

REACTIONS (1)
  - Coma [Recovered/Resolved]

NARRATIVE: CASE EVENT DATE: 20180204
